FAERS Safety Report 4602543-4 (Version None)
Quarter: 2005Q1

REPORT INFORMATION
  Report Type: 
  Country: None (occurrence: None)
  Receive Date: 20050307
  Receipt Date: 20050224
  Transmission Date: 20050727
  Serious: Yes (Hospitalization)
  Sender: FDA-Public Use
  Company Number: 200415612BCC

PATIENT
  Age: 73 Year
  Sex: Male
  Weight: 88.905 kg

DRUGS (2)
  1. ALEVE [Suspect]
     Indication: ARTHRITIS
     Dosage: 220 MG, BID, ORAL
     Route: 048
  2. NORVASC [Concomitant]

REACTIONS (1)
  - RENAL ATROPHY [None]
